FAERS Safety Report 9786556 (Version 2)
Quarter: 2014Q1

REPORT INFORMATION
  Report Type: Spontaneous
  Country: US (occurrence: US)
  Receive Date: 20131227
  Receipt Date: 20140325
  Transmission Date: 20141002
  Serious: Yes (Hospitalization, Other)
  Sender: FDA-Public Use
  Company Number: US-PFIZER INC-2013366805

PATIENT
  Age: 72 Year
  Sex: Male

DRUGS (3)
  1. SULFASALAZINE [Suspect]
     Indication: COLITIS ULCERATIVE
     Dosage: 2 G, DAILY
  2. PREDNISONE [Concomitant]
     Indication: COLITIS ULCERATIVE
     Dosage: 40 MG, DAILY
  3. PREDNISONE [Concomitant]
     Dosage: 5 MG, DAILY

REACTIONS (2)
  - Interstitial lung disease [Recovered/Resolved]
  - Lung disorder [Recovered/Resolved]
